FAERS Safety Report 15891636 (Version 2)
Quarter: 2019Q1

REPORT INFORMATION
  Report Type: Spontaneous
  Country: JP (occurrence: JP)
  Receive Date: 20190130
  Receipt Date: 20190208
  Transmission Date: 20190417
  Serious: Yes (Death, Other)
  Sender: FDA-Public Use
  Company Number: JP-MALLINCKRODT-T201901258

PATIENT
  Age: 96 Year
  Sex: Female
  Weight: 31 kg

DRUGS (6)
  1. GLYCYRON [Concomitant]
     Indication: PRODUCT USED FOR UNKNOWN INDICATION
     Dosage: UNK
     Route: 042
     Dates: start: 20181221
  2. OFIRMEV [Suspect]
     Active Substance: ACETAMINOPHEN
     Indication: PAIN
     Dosage: 1.8 G, (ONE TIME DOSE OF 0.6 G)
     Route: 042
     Dates: start: 20181219, end: 20181221
  3. FAMOTIDINE. [Suspect]
     Active Substance: FAMOTIDINE
     Indication: STRESS ULCER
     Dosage: 20 MG, QD
     Route: 042
     Dates: start: 20181221, end: 20181230
  4. TAKEPRON [Concomitant]
     Active Substance: LANSOPRAZOLE
     Indication: PRODUCT USED FOR UNKNOWN INDICATION
     Dosage: UNK
     Route: 042
     Dates: start: 20181219, end: 20181221
  5. MEROPENEM. [Concomitant]
     Active Substance: MEROPENEM
     Indication: PRODUCT USED FOR UNKNOWN INDICATION
     Dosage: UNK
     Route: 042
  6. AMINOLEBAN [Concomitant]
     Active Substance: AMINO ACIDS
     Indication: HEPATIC FAILURE
     Dosage: UNK
     Route: 042
     Dates: start: 20181221

REACTIONS (2)
  - Pancytopenia [Unknown]
  - Hepatitis fulminant [Fatal]

NARRATIVE: CASE EVENT DATE: 20181221
